FAERS Safety Report 20490734 (Version 1)
Quarter: 2022Q1

REPORT INFORMATION
  Report Type: Spontaneous
  Country: US (occurrence: US)
  Receive Date: 20220218
  Receipt Date: 20220218
  Transmission Date: 20220423
  Serious: Yes (Death)
  Sender: FDA-Public Use
  Company Number: US-PARI RESPIRATORY EQUIPMENT, INC.-2022PAR00010

PATIENT
  Age: 24 Year
  Sex: Male

DRUGS (2)
  1. KITABIS PAK [Suspect]
     Active Substance: TOBRAMYCIN
     Indication: Bronchitis
     Dosage: 300 MG,VIA NEBULIZER 2X/DAY FOR 28 DAYS ON THEN 28 DAYS OFF
     Dates: start: 202109
  2. KITABIS PAK [Suspect]
     Active Substance: TOBRAMYCIN
     Indication: Bacterial infection

REACTIONS (2)
  - Death [Fatal]
  - Off label use [Unknown]

NARRATIVE: CASE EVENT DATE: 20210901
